FAERS Safety Report 9319576 (Version 1)
Quarter: 2013Q2

REPORT INFORMATION
  Report Type: Spontaneous
  Country: US (occurrence: US)
  Receive Date: 20130530
  Receipt Date: 20130530
  Transmission Date: 20140414
  Serious: No
  Sender: FDA-Public Use
  Company Number: US-GLAXOSMITHKLINE-A1008046A

PATIENT
  Age: 36 Year
  Sex: Male

DRUGS (1)
  1. FLOLAN [Suspect]
     Dosage: 6NGKM CONTINUOUS
     Route: 065
     Dates: start: 20121120, end: 20121208

REACTIONS (1)
  - Drug intolerance [Unknown]
